FAERS Safety Report 7336460-6 (Version None)
Quarter: 2011Q1

REPORT INFORMATION
  Report Type: 
  Country: None (occurrence: None)
  Receive Date: 20110307
  Receipt Date: 20110222
  Transmission Date: 20110831
  Serious: Yes (Other)
  Sender: FDA-Public Use
  Company Number: US-MYLANLABS-2011S1003790

PATIENT
  Age: 77 Year
  Sex: Female

DRUGS (6)
  1. RANITIDINE [Concomitant]
     Indication: BREAST CANCER
     Route: 065
  2. LEVOTHYROXINE SODIUM [Concomitant]
     Route: 065
  3. ASPIRIN [Concomitant]
     Route: 065
  4. PACLITAXEL [Suspect]
     Indication: BREAST CANCER
     Route: 042
  5. ALENDRONIC ACID [Concomitant]
     Route: 065
  6. DIPHENHYDRAMINE [Concomitant]
     Indication: BREAST CANCER
     Route: 065

REACTIONS (2)
  - ERYTHEMA [None]
  - ACUTE FEBRILE NEUTROPHILIC DERMATOSIS [None]
